FAERS Safety Report 9300919 (Version 1)
Quarter: 2013Q2

REPORT INFORMATION
  Report Type: Spontaneous
  Country: RU (occurrence: RU)
  Receive Date: 20130521
  Receipt Date: 20130521
  Transmission Date: 20140414
  Serious: Yes (Life-Threatening, Hospitalization)
  Sender: FDA-Public Use
  Company Number: RU-ASTRAZENECA-2013SE35011

PATIENT
  Age: 45 Year
  Sex: Male

DRUGS (7)
  1. BRILINTA [Suspect]
     Indication: MYOCARDIAL INFARCTION
     Route: 048
     Dates: start: 20120711, end: 20130430
  2. BRILINTA [Suspect]
     Indication: MYOCARDIAL INFARCTION
     Route: 048
     Dates: start: 20130501, end: 20130510
  3. BRILINTA [Suspect]
     Indication: MYOCARDIAL INFARCTION
     Route: 048
     Dates: start: 20130512
  4. BETALOC ZOK [Concomitant]
     Route: 048
  5. ASPIRIN [Concomitant]
     Route: 048
  6. ATORVASTATIN [Concomitant]
     Route: 048
  7. PRESTARIUM [Concomitant]
     Route: 048

REACTIONS (3)
  - Thrombosis in device [Recovered/Resolved]
  - Myocardial infarction [Recovered/Resolved]
  - Intentional drug misuse [Recovered/Resolved]
